FAERS Safety Report 10199407 (Version 2)
Quarter: 2014Q2

REPORT INFORMATION
  Report Type: Spontaneous
  Country: SE (occurrence: SE)
  Receive Date: 20140527
  Receipt Date: 20140527
  Transmission Date: 20141212
  Serious: Yes (Other)
  Sender: FDA-Public Use
  Company Number: SE-ALLERGAN-1410241US

PATIENT
  Sex: Female

DRUGS (2)
  1. LUMIGAN SOLUTION 0.01% [Suspect]
     Indication: GLAUCOMA
     Dosage: UNK
     Dates: start: 20140414
  2. XALATAN [Concomitant]
     Indication: GLAUCOMA
     Dosage: UNK
     Dates: end: 20140414

REACTIONS (5)
  - Colon neoplasm [Unknown]
  - Frequent bowel movements [Unknown]
  - Mucous stools [Unknown]
  - Defaecation urgency [Unknown]
  - Ocular discomfort [Unknown]
